FAERS Safety Report 9821572 (Version 1)
Quarter: 2014Q1

REPORT INFORMATION
  Report Type: Spontaneous
  Country: US (occurrence: US)
  Receive Date: 20140116
  Receipt Date: 20140116
  Transmission Date: 20141002
  Serious: Yes (Other)
  Sender: FDA-Public Use
  Company Number: US-AMGEN-USASP2014002188

PATIENT
  Age: 61 Year
  Sex: Female

DRUGS (2)
  1. ENBREL [Suspect]
     Indication: RHEUMATOID ARTHRITIS
     Dosage: UNK UNK, QWK
     Route: 065
     Dates: start: 2004, end: 2005
  2. METHOTREXATE [Concomitant]
     Dosage: 15 MG, QWK
     Dates: start: 2004

REACTIONS (11)
  - Abasia [Recovered/Resolved]
  - Arthralgia [Not Recovered/Not Resolved]
  - Musculoskeletal pain [Not Recovered/Not Resolved]
  - Back pain [Not Recovered/Not Resolved]
  - Local swelling [Not Recovered/Not Resolved]
  - Joint swelling [Not Recovered/Not Resolved]
  - Panic reaction [Not Recovered/Not Resolved]
  - Malaise [Recovered/Resolved]
  - Choking sensation [Recovered/Resolved]
  - Mental impairment [Recovered/Resolved]
  - Muscular weakness [Not Recovered/Not Resolved]
